FAERS Safety Report 16411084 (Version 5)
Quarter: 2025Q3

REPORT INFORMATION
  Report Type: Spontaneous
  Country: EU (occurrence: EU)
  Receive Date: 20190610
  Receipt Date: 20250808
  Transmission Date: 20251021
  Serious: Yes (Hospitalization, Other)
  Sender: MYLAN
  Company Number: EU-VELOXISUB-2017VELFR0527

PATIENT
  Age: 6 Year
  Sex: Female

DRUGS (16)
  1. MYCOPHENOLATE MOFETIL [Suspect]
     Active Substance: MYCOPHENOLATE MOFETIL
     Indication: Transplant rejection
  2. MYCOPHENOLATE MOFETIL [Suspect]
     Active Substance: MYCOPHENOLATE MOFETIL
     Indication: Liver transplant
  3. MYCOPHENOLATE MOFETIL [Suspect]
     Active Substance: MYCOPHENOLATE MOFETIL
     Indication: Immunosuppressant drug therapy
  4. TACROLIMUS [Suspect]
     Active Substance: TACROLIMUS
     Indication: Immunosuppressant drug therapy
     Dosage: 0.4 MILLIGRAM, QD
  5. TACROLIMUS [Suspect]
     Active Substance: TACROLIMUS
  6. TACROLIMUS [Suspect]
     Active Substance: TACROLIMUS
  7. TACROLIMUS [Suspect]
     Active Substance: TACROLIMUS
     Dosage: 0.2 MILLIGRAM, BID (0.2 MG TWICE DAILY)
  8. BASILIXIMAB [Suspect]
     Active Substance: BASILIXIMAB
     Indication: Liver transplant
  9. BASILIXIMAB [Suspect]
     Active Substance: BASILIXIMAB
     Indication: Immunosuppressant drug therapy
  10. METHYLPREDNISOLONE [Suspect]
     Active Substance: METHYLPREDNISOLONE
     Indication: Immunosuppressant drug therapy
     Dosage: 10 MILLIGRAM/KILOGRAM, ONE CORTICOSTEROID PULSE ON DAY 9 OF 2ND TRANSPLANTATION
  11. METHYLPREDNISOLONE [Suspect]
     Active Substance: METHYLPREDNISOLONE
     Indication: Liver transplant
  12. METHYLPREDNISOLONE [Suspect]
     Active Substance: METHYLPREDNISOLONE
     Indication: Transplant rejection
     Dosage: 30 MILLIGRAM/KILOGRAM, QD, 3 CORTICOSTEROID PULSES
  13. FLUCONAZOLE [Concomitant]
     Active Substance: FLUCONAZOLE
     Indication: Antifungal prophylaxis
     Dosage: 3 MILLIGRAM/KILOGRAM, QD
  14. AMPHOTERICIN B [Concomitant]
     Active Substance: AMPHOTERICIN B
     Indication: Antifungal prophylaxis
     Dosage: 50 MILLIGRAM/KILOGRAM, QD
  15. CASPOFUNGIN [Concomitant]
     Active Substance: CASPOFUNGIN
     Indication: Antifungal prophylaxis
     Dosage: 60 MILLIGRAM/SQ. METER, QD
  16. CASPOFUNGIN [Concomitant]
     Active Substance: CASPOFUNGIN
     Indication: Antifungal treatment
     Dosage: 30 MILLIGRAM/SQ. METER, Q3D

REACTIONS (9)
  - Pulmonary mass [Recovered/Resolved]
  - Lung infiltration [Recovered/Resolved]
  - Liver transplant rejection [Recovered/Resolved]
  - Mass [Recovered/Resolved]
  - Coccidioidomycosis [Recovered/Resolved]
  - Vomiting [Recovered/Resolved]
  - Pyrexia [Recovered/Resolved]
  - Abdominal pain [Recovered/Resolved]
  - Product administered to patient of inappropriate age [Unknown]
